FAERS Safety Report 12831233 (Version 2)
Quarter: 2017Q1

REPORT INFORMATION
  Report Type: Spontaneous
  Country: US (occurrence: US)
  Receive Date: 20161008
  Receipt Date: 20170201
  Transmission Date: 20170428
  Serious: Yes (Hospitalization, Other)
  Sender: FDA-Public Use
  Company Number: US-AMGEN-USASP2016136427

PATIENT
  Age: 58 Year
  Sex: Female
  Weight: 102.4 kg

DRUGS (5)
  1. IBRANCE [Suspect]
     Active Substance: PALBOCICLIB
     Indication: BREAST CANCER
     Dosage: 125 MG, QD
     Route: 065
     Dates: start: 201601
  2. LEXAPRO [Concomitant]
     Active Substance: ESCITALOPRAM OXALATE
     Indication: ANXIETY
     Dosage: UNK
     Dates: start: 2009
  3. XGEVA [Suspect]
     Active Substance: DENOSUMAB
     Indication: BONE DENSITY ABNORMAL
     Dosage: UNK, QMO
     Route: 065
     Dates: start: 2015
  4. TOPROL XL [Concomitant]
     Active Substance: METOPROLOL SUCCINATE
     Dosage: UNK
  5. FASLODEX [Suspect]
     Active Substance: FULVESTRANT
     Indication: HORMONE LEVEL ABNORMAL
     Dosage: UNK UNK, QMO
     Route: 065
     Dates: start: 201601

REACTIONS (13)
  - Heart rate increased [Unknown]
  - Thrombosis [Recovering/Resolving]
  - Gait disturbance [Recovering/Resolving]
  - Weight increased [Not Recovered/Not Resolved]
  - Gastrooesophageal reflux disease [Recovering/Resolving]
  - Fear [Not Recovered/Not Resolved]
  - Depression [Unknown]
  - Off label use [Unknown]
  - Decreased appetite [Recovering/Resolving]
  - Blood pressure increased [Recovering/Resolving]
  - Dyspnoea [Not Recovered/Not Resolved]
  - Muscular weakness [Unknown]
  - Lethargy [Not Recovered/Not Resolved]

NARRATIVE: CASE EVENT DATE: 201601
